FAERS Safety Report 13352255 (Version 1)
Quarter: 2017Q1

REPORT INFORMATION
  Report Type: Spontaneous
  Country: PL (occurrence: PL)
  Receive Date: 20170320
  Receipt Date: 20170320
  Transmission Date: 20170429
  Serious: Yes (Hospitalization, Other)
  Sender: FDA-Public Use
  Company Number: PL-BAUSCH-BL-2017-007295

PATIENT
  Sex: Female

DRUGS (10)
  1. FLUOROURACIL. [Suspect]
     Active Substance: FLUOROURACIL
     Indication: SMALL INTESTINE ADENOCARCINOMA
     Route: 065
     Dates: start: 2013
  2. FLUOROURACIL. [Suspect]
     Active Substance: FLUOROURACIL
     Indication: OVARIAN EPITHELIAL CANCER
  3. CISPLATIN. [Suspect]
     Active Substance: CISPLATIN
     Indication: SMALL INTESTINE ADENOCARCINOMA
     Route: 033
     Dates: start: 2013
  4. FLUOROURACIL. [Suspect]
     Active Substance: FLUOROURACIL
     Indication: METASTASES TO RECTUM
  5. CISPLATIN. [Suspect]
     Active Substance: CISPLATIN
     Indication: OVARIAN EPITHELIAL CANCER
  6. LEUCOVORIN. [Suspect]
     Active Substance: LEUCOVORIN
     Indication: SMALL INTESTINE ADENOCARCINOMA
     Route: 065
     Dates: start: 2013
  7. LEUCOVORIN. [Suspect]
     Active Substance: LEUCOVORIN
     Indication: OVARIAN EPITHELIAL CANCER
  8. LEUCOVORIN. [Suspect]
     Active Substance: LEUCOVORIN
     Indication: METASTASES TO UTERUS
  9. FLUOROURACIL. [Suspect]
     Active Substance: FLUOROURACIL
     Indication: METASTASES TO UTERUS
  10. LEUCOVORIN. [Suspect]
     Active Substance: LEUCOVORIN
     Indication: METASTASES TO RECTUM

REACTIONS (3)
  - Wound infection [Recovered/Resolved]
  - Impaired healing [Recovered/Resolved]
  - Enterocutaneous fistula [Recovered/Resolved]

NARRATIVE: CASE EVENT DATE: 2013
